FAERS Safety Report 22263342 (Version 1)
Quarter: 2023Q2

REPORT INFORMATION
  Report Type: Other
  Country: None (occurrence: CH)
  Receive Date: 20230428
  Receipt Date: 20230428
  Transmission Date: 20230722
  Serious: Yes (Life-Threatening)
  Sender: FDA-Public Use
  Company Number: CH-B.Braun Medical Inc.-2140882

PATIENT
  Age: 52 Year

DRUGS (5)
  1. LIDOCAINE HYDROCHLORIDE AND DEXTROSE [Suspect]
     Active Substance: LIDOCAINE HYDROCHLORIDE
     Indication: Ventricular fibrillation
     Route: 042
  2. EPINEPHRINE [Suspect]
     Active Substance: EPINEPHRINE
  3. AMIODARONE [Suspect]
     Active Substance: AMIODARONE
  4. METOPROLOL [Suspect]
     Active Substance: METOPROLOL
  5. MAGNESIUM [Suspect]
     Active Substance: MAGNESIUM

REACTIONS (1)
  - Drug ineffective [Unknown]
